FAERS Safety Report 24689756 (Version 1)
Quarter: 2024Q4

REPORT INFORMATION
  Report Type: Spontaneous
  Country: CN (occurrence: CN)
  Receive Date: 20241203
  Receipt Date: 20241203
  Transmission Date: 20250115
  Serious: Yes (Other)
  Sender: ROCHE
  Company Number: CN-ROCHE-10000147180

PATIENT
  Age: 58 Year
  Sex: Female
  Weight: 65 kg

DRUGS (4)
  1. TRASTUZUMAB [Suspect]
     Active Substance: TRASTUZUMAB
     Indication: Breast cancer
     Route: 042
     Dates: start: 20241121, end: 20241121
  2. PERTUZUMAB [Suspect]
     Active Substance: PERTUZUMAB
     Indication: Breast cancer
     Dosage: ACCORDING TO DESCRIPTION, THE PERJETA WAS UPDATED TO SUSPECT DRUG
     Route: 042
     Dates: start: 20241121, end: 20241121
  3. GLUTATHIONE [Concomitant]
     Active Substance: GLUTATHIONE
     Route: 042
  4. bicyclol + compound glycyrrhizin [Concomitant]

REACTIONS (1)
  - Hepatic function abnormal [Recovering/Resolving]

NARRATIVE: CASE EVENT DATE: 20241121
